FAERS Safety Report 5812416-7 (Version None)
Quarter: 2008Q3

REPORT INFORMATION
  Report Type: 
  Country: None (occurrence: None)
  Receive Date: 20080716
  Receipt Date: 20080528
  Transmission Date: 20090109
  Serious: Yes (Other)
  Sender: FDA-Public Use
  Company Number: FR-PFIZER INC-2008009679

PATIENT
  Sex: Male
  Weight: 77 kg

DRUGS (5)
  1. TAHOR [Suspect]
     Indication: MYOCARDIAL INFARCTION
     Route: 048
     Dates: start: 20041001, end: 20071218
  2. TAHOR [Suspect]
     Indication: CORONARY ARTERY BYPASS
  3. ATENOLOL [Concomitant]
     Route: 048
  4. RAMIPRIL [Concomitant]
     Route: 048
  5. KARDEGIC [Concomitant]
     Route: 048

REACTIONS (4)
  - BLOOD CREATINE PHOSPHOKINASE INCREASED [None]
  - HYPOTHYROIDISM [None]
  - MUSCULAR WEAKNESS [None]
  - NEUROMYOPATHY [None]
